FAERS Safety Report 6231070-6 (Version None)
Quarter: 2009Q2

REPORT INFORMATION
  Report Type: 
  Country: None (occurrence: None)
  Receive Date: 20090612
  Receipt Date: 20090612
  Transmission Date: 20091009
  Serious: No
  Sender: FDA-Public Use
  Company Number: None

PATIENT
  Age: 62 Year
  Sex: Male
  Weight: 123.38 kg

DRUGS (1)
  1. BACITRACIN/LIDOCAINE/NEOMYCIN/POLYMYXIN [Suspect]
     Indication: LACERATION
     Dosage: APPLY TID TOP
     Route: 061
     Dates: start: 20090528, end: 20090604

REACTIONS (1)
  - RASH [None]
